FAERS Safety Report 23694028 (Version 2)
Quarter: 2024Q2

REPORT INFORMATION
  Report Type: Spontaneous
  Country: US (occurrence: US)
  Receive Date: 20240401
  Receipt Date: 20240411
  Transmission Date: 20240715
  Serious: Yes (Hospitalization)
  Sender: FDA-Public Use
  Company Number: US-INTRA-CELLULAR THERAPIES, INC.-2024ICT00452

PATIENT
  Age: 42 Year
  Sex: Female

DRUGS (1)
  1. CAPLYTA [Suspect]
     Active Substance: LUMATEPERONE
     Indication: Bipolar II disorder
     Dosage: 42 MG, 1X/DAY
     Dates: start: 202310

REACTIONS (5)
  - Cellulitis [Not Recovered/Not Resolved]
  - Depression [Recovered/Resolved]
  - Tachyphrenia [Recovered/Resolved]
  - Abdominal discomfort [Recovered/Resolved]
  - Product dose omission issue [Recovered/Resolved]

NARRATIVE: CASE EVENT DATE: 20240314
